FAERS Safety Report 8357386-5 (Version None)
Quarter: 2012Q2

REPORT INFORMATION
  Report Type: 
  Country: None (occurrence: None)
  Receive Date: 20120514
  Receipt Date: 20120509
  Transmission Date: 20120825
  Serious: Yes (Life-Threatening, Hospitalization)
  Sender: FDA-Public Use
  Company Number: CH-ROCHE-1068501

PATIENT
  Age: 82 Year
  Sex: Female

DRUGS (4)
  1. LUCENTIS [Suspect]
     Indication: AGE-RELATED MACULAR DEGENERATION
     Route: 050
     Dates: start: 20101207
  2. LUCENTIS [Suspect]
     Route: 050
     Dates: start: 20110609
  3. HYDROCORTISONE [Concomitant]
     Indication: ARTHRITIS
  4. CORTISONE ACETATE [Suspect]
     Indication: ARTHRITIS
     Route: 048

REACTIONS (2)
  - TRANSIENT ISCHAEMIC ATTACK [None]
  - CEREBRAL INFARCTION [None]
